FAERS Safety Report 23068511 (Version 3)
Quarter: 2023Q4

REPORT INFORMATION
  Report Type: Spontaneous
  Country: CO (occurrence: CO)
  Receive Date: 20231016
  Receipt Date: 20231115
  Transmission Date: 20240110
  Serious: No
  Sender: FDA-Public Use
  Company Number: CO-PFIZER INC-PV202300159396

PATIENT
  Age: 13 Year
  Sex: Male

DRUGS (2)
  1. GENOTROPIN [Suspect]
     Active Substance: SOMATROPIN
     Dosage: 1 MG
     Route: 058
  2. GENOTROPIN [Suspect]
     Active Substance: SOMATROPIN
     Dosage: 1.2 MG, DAILY
     Route: 058
     Dates: end: 20230920

REACTIONS (4)
  - Product administration error [Unknown]
  - Drug dose omission by device [Unknown]
  - Device failure [Unknown]
  - Device information output issue [Unknown]

NARRATIVE: CASE EVENT DATE: 20230920
